FAERS Safety Report 7388961-2 (Version None)
Quarter: 2011Q2

REPORT INFORMATION
  Report Type: 
  Country: None (occurrence: None)
  Receive Date: 20110401
  Receipt Date: 20110330
  Transmission Date: 20111010
  Serious: Yes (Life-Threatening, Hospitalization)
  Sender: FDA-Public Use
  Company Number: US-US-EMD SERONO, INC.-7043471

PATIENT
  Sex: Male

DRUGS (7)
  1. CYTOXAN [Concomitant]
     Indication: MULTIPLE SCLEROSIS
     Dates: start: 20060101, end: 20070701
  2. NOVANTRONE [Concomitant]
     Indication: MULTIPLE SCLEROSIS
     Dates: start: 20050101, end: 20050601
  3. PROZAC [Concomitant]
     Indication: PSYCHIATRIC SYMPTOM
     Dates: start: 20061219
  4. REBIF [Suspect]
     Indication: MULTIPLE SCLEROSIS
     Route: 058
     Dates: start: 20041201, end: 20061117
  5. ZOFRAN [Concomitant]
     Indication: PROPHYLAXIS
     Dates: start: 20061201, end: 20070101
  6. REBIF [Suspect]
     Route: 058
     Dates: start: 20061117, end: 20070609
  7. PROVIGIL [Concomitant]
     Indication: FATIGUE
     Dates: start: 20061219, end: 20080101

REACTIONS (1)
  - IDIOPATHIC THROMBOCYTOPENIC PURPURA [None]
